FAERS Safety Report 15614659 (Version 3)
Quarter: 2019Q3

REPORT INFORMATION
  Report Type: Spontaneous
  Country: US (occurrence: US)
  Receive Date: 20181113
  Receipt Date: 20190828
  Transmission Date: 20191004
  Serious: No
  Sender: FDA-Public Use
  Company Number: US-MYLANLABS-2018M1081958

PATIENT
  Sex: Female
  Weight: 109 kg

DRUGS (1)
  1. CLONIDINE. [Suspect]
     Active Substance: CLONIDINE
     Indication: HYPERTENSION
     Dosage: UNK

REACTIONS (7)
  - Application site pruritus [Unknown]
  - Application site burn [Unknown]
  - Application site erosion [Unknown]
  - Application site erythema [Unknown]
  - Application site vesicles [Unknown]
  - Blister rupture [Unknown]
  - Application site rash [Unknown]
